FAERS Safety Report 9168096 (Version 7)
Quarter: 2014Q3

REPORT INFORMATION
  Report Type: Spontaneous
  Country: PH (occurrence: None)
  Receive Date: 20130307
  Receipt Date: 20140808
  Transmission Date: 20150326
  Serious: Yes (Hospitalization)
  Sender: FDA-Public Use
  Company Number: VAL_01454_2013

PATIENT
  Age: 77 Year
  Sex: Male
  Weight: 60 kg

DRUGS (2)
  1. METOPROLOL [Suspect]
     Active Substance: METOPROLOL
     Indication: PRODUCT USED FOR UNKNOWN INDICATION
     Dosage: DF
     Route: 048
     Dates: start: 20110824, end: 20130220
  2. LCZ696 [Suspect]
     Active Substance: INVESTIGATIONAL PRODUCT
     Indication: CARDIAC FAILURE CHRONIC
     Dosage: DF (CODE NOT BROKEN) ORAL
     Route: 048
     Dates: start: 20101209

REACTIONS (10)
  - Asthenia [None]
  - Atrial fibrillation [None]
  - Blood potassium decreased [None]
  - Dizziness [None]
  - Hypocalcaemia [None]
  - Atrioventricular block complete [None]
  - Chest pain [None]
  - Blood pressure increased [None]
  - Hyperhidrosis [None]
  - Bundle branch block right [None]

NARRATIVE: CASE EVENT DATE: 20130220
